FAERS Safety Report 25866872 (Version 1)
Quarter: 2025Q4

REPORT INFORMATION
  Report Type: Spontaneous
  Country: GB (occurrence: GB)
  Receive Date: 20251001
  Receipt Date: 20251001
  Transmission Date: 20260118
  Serious: Yes (Other)
  Sender: TEVA
  Company Number: GB-MHRA-TPP29811275C8496661YC1759154875964

PATIENT
  Age: 44 Year
  Sex: Female
  Weight: 77 kg

DRUGS (8)
  1. NAPROXEN [Suspect]
     Active Substance: NAPROXEN
     Indication: Hemiplegic migraine
     Route: 065
     Dates: start: 20250929
  2. OMEPRAZOLE [Concomitant]
     Active Substance: OMEPRAZOLE
     Indication: Ill-defined disorder
     Dosage: WHILST TAKING NAPROXEN
     Dates: start: 20250924
  3. FERROUS FUMARATE [Concomitant]
     Active Substance: FERROUS FUMARATE
     Indication: Ill-defined disorder
     Dosage: 2X5ML SPOON TWICE DAILY
     Dates: start: 20250314
  4. NAPROXEN [Concomitant]
     Active Substance: NAPROXEN
     Indication: Headache
     Dates: start: 20250924
  5. TRANEXAMIC ACID [Concomitant]
     Active Substance: TRANEXAMIC ACID
     Indication: Ill-defined disorder
     Dosage: TIME INTERVAL: 0.33333333 DAYS: UP TO  FOUR DA...
     Dates: start: 20250708, end: 20250805
  6. AMITRIPTYLINE HYDROCHLORIDE [Concomitant]
     Active Substance: AMITRIPTYLINE HYDROCHLORIDE
     Indication: Ill-defined disorder
     Dosage: (1ML)
     Dates: start: 20250708
  7. BECLOMETHASONE\FORMOTEROL [Concomitant]
     Active Substance: BECLOMETHASONE\FORMOTEROL
     Indication: Ill-defined disorder
     Dosage: INHALE METERED DOSES RINSE MOUT...
     Dates: start: 20250908
  8. PROCTOSEDYL [Concomitant]
     Active Substance: DIBUCAINE HYDROCHLORIDE\HYDROCORTISONE
     Indication: Ill-defined disorder
     Dosage: APPLY AND EVERY TIME AFTER OPENING ...
     Dates: start: 20250714, end: 20250721

REACTIONS (1)
  - Seizure [Recovered/Resolved]

NARRATIVE: CASE EVENT DATE: 20250929
